FAERS Safety Report 23487918 (Version 2)
Quarter: 2024Q1

REPORT INFORMATION
  Report Type: Spontaneous
  Country: DE (occurrence: DE)
  Receive Date: 20240206
  Receipt Date: 20240223
  Transmission Date: 20240410
  Serious: Yes (Other)
  Sender: FDA-Public Use
  Company Number: DE-BRISTOL-MYERS SQUIBB COMPANY-2022-120200

PATIENT
  Age: 56 Year
  Sex: Female
  Weight: 58 kg

DRUGS (19)
  1. CARBOPLATIN [Suspect]
     Active Substance: CARBOPLATIN
     Indication: Non-small cell lung cancer
     Dosage: 588 MG, TIW
     Route: 042
     Dates: start: 20220914
  2. CARBOPLATIN [Suspect]
     Active Substance: CARBOPLATIN
     Dosage: 623 MG, TIW
     Route: 042
     Dates: start: 20230830
  3. OPDIVO [Suspect]
     Active Substance: NIVOLUMAB
     Indication: Non-small cell lung cancer
     Dosage: 360 MG, TIW
     Route: 042
     Dates: start: 20220914
  4. OPDIVO [Suspect]
     Active Substance: NIVOLUMAB
     Dosage: 360 MG, TIW
     Route: 042
     Dates: start: 20230830
  5. PACLITAXEL [Suspect]
     Active Substance: PACLITAXEL
     Indication: Non-small cell lung cancer
     Dosage: 354 MG, TIW
     Route: 065
  6. YERVOY [Suspect]
     Active Substance: IPILIMUMAB
     Indication: Non-small cell lung cancer
     Dosage: 59 MG, EVERY 6 WEEKS
     Route: 042
     Dates: start: 20220914
  7. YERVOY [Suspect]
     Active Substance: IPILIMUMAB
     Dosage: 64 MG, TIW (3 WEEK)
     Route: 042
     Dates: start: 20230830
  8. APREPITANT [Concomitant]
     Active Substance: APREPITANT
     Indication: Product used for unknown indication
     Dosage: UNK
     Route: 065
     Dates: start: 20220914
  9. BUDESONIDE [Concomitant]
     Active Substance: BUDESONIDE
     Indication: Product used for unknown indication
     Dosage: UNK
     Route: 065
     Dates: start: 20221012, end: 20221021
  10. METHYLPREDNISOLONE [Concomitant]
     Active Substance: METHYLPREDNISOLONE
     Dosage: 96MG/DUNK
     Route: 065
     Dates: start: 20230919, end: 20230928
  11. METHYLPREDNISOLONE [Concomitant]
     Active Substance: METHYLPREDNISOLONE
     Dosage: 96MG/DUNK
     Route: 065
     Dates: start: 20230928, end: 20231012
  12. METHYLPREDNISOLONE [Concomitant]
     Active Substance: METHYLPREDNISOLONE
     Dosage: 96MG/DUNK
     Route: 065
     Dates: start: 20231012, end: 20231030
  13. METHYLPREDNISOLONE [Concomitant]
     Active Substance: METHYLPREDNISOLONE
     Dosage: 96MG/DUNK
     Route: 065
     Dates: start: 20231030
  14. METHYLPREDNISOLONE [Concomitant]
     Active Substance: METHYLPREDNISOLONE
     Indication: Product used for unknown indication
     Dosage: UNK
     Route: 065
  15. MYCOPHENOLATE MOFETIL [Concomitant]
     Active Substance: MYCOPHENOLATE MOFETIL
     Indication: Product used for unknown indication
     Dosage: UNK
     Route: 065
     Dates: start: 20231123
  16. METAMIZOLE [Concomitant]
     Active Substance: METAMIZOLE
     Indication: Product used for unknown indication
     Dosage: UNK
     Route: 065
     Dates: start: 20220914
  17. PALONOSETRON [Concomitant]
     Active Substance: PALONOSETRON
     Indication: Product used for unknown indication
     Dosage: UNK
     Route: 065
     Dates: start: 20220914
  18. PREDNISOLONE [Concomitant]
     Active Substance: PREDNISOLONE
     Indication: Product used for unknown indication
     Dosage: UNK
     Route: 065
     Dates: start: 20221012, end: 20221026
  19. CLEMASTINE FUMARATE [Concomitant]
     Active Substance: CLEMASTINE FUMARATE
     Indication: Product used for unknown indication
     Dosage: UNK
     Route: 065
     Dates: start: 20220914

REACTIONS (6)
  - Immune-mediated hepatitis [Not Recovered/Not Resolved]
  - Immune-mediated enterocolitis [Not Recovered/Not Resolved]
  - Hepatomegaly [Recovering/Resolving]
  - Blood bilirubin increased [Recovering/Resolving]
  - Off label use [Unknown]
  - Prescribed overdose [Unknown]

NARRATIVE: CASE EVENT DATE: 20221012
